FAERS Safety Report 5166765-9 (Version None)
Quarter: 2006Q4

REPORT INFORMATION
  Report Type: 
  Country: None (occurrence: None)
  Receive Date: 20061207
  Receipt Date: 20061106
  Transmission Date: 20070319
  Serious: Yes (Disabling)
  Sender: FDA-Public Use
  Company Number: JP-ELI_LILLY_AND_COMPANY-JP200611001457

PATIENT
  Age: 30 Year
  Sex: Female
  Weight: 57 kg

DRUGS (8)
  1. ZYPREXA [Suspect]
     Indication: SCHIZOPHRENIA
     Dosage: 10 MG, DAILY (1/D)
     Route: 048
     Dates: start: 20060904, end: 20060913
  2. ZYPREXA [Suspect]
     Dosage: 5 MG, 3/D
     Route: 048
     Dates: start: 20060914, end: 20061016
  3. LULLAN                                  /JPN/ [Concomitant]
     Indication: SCHIZOPHRENIA
     Dosage: 4 MG, 3/D
     Route: 048
     Dates: start: 20060801, end: 20060814
  4. LULLAN                                  /JPN/ [Concomitant]
     Dosage: 8 MG, 3/D
     Route: 048
     Dates: start: 20060815, end: 20060827
  5. LULLAN                                  /JPN/ [Concomitant]
     Dosage: 12 MG, 3/D
     Route: 048
     Dates: start: 20060828
  6. ZOTEPINE [Concomitant]
     Dosage: 100 MG, DAILY (1/D)
     Route: 048
     Dates: start: 20060821
  7. DIAZEPAM [Concomitant]
     Dosage: 5 MG, AS NEEDED
     Route: 048
  8. AKIRIDEN                                /JPN/ [Concomitant]
     Indication: PROPHYLAXIS
     Dosage: 3 MG, DAILY (1/D)
     Route: 048
     Dates: start: 20060502

REACTIONS (6)
  - AGGRESSION [None]
  - AGITATION [None]
  - AMIMIA [None]
  - ANOREXIA [None]
  - DIET REFUSAL [None]
  - INAPPROPRIATE AFFECT [None]
